FAERS Safety Report 20448933 (Version 1)
Quarter: 2022Q1

REPORT INFORMATION
  Report Type: Spontaneous
  Country: FR (occurrence: FR)
  Receive Date: 20220209
  Receipt Date: 20220209
  Transmission Date: 20220423
  Serious: Yes (Other)
  Sender: FDA-Public Use
  Company Number: None

PATIENT
  Age: 35 Year
  Sex: Male

DRUGS (3)
  1. PREGABALIN [Suspect]
     Active Substance: PREGABALIN
     Dosage: 3 TO 4 TABLETS DAILY
  2. RIVOTRIL [Suspect]
     Active Substance: CLONAZEPAM
     Dosage: ABOUT TEN TABLETS PER DAY
  3. COCAINE [Suspect]
     Active Substance: COCAINE
     Dosage: 10 G OVER SEVERAL DAYS (INCLUDING 3 G IN 2 DAYS)
     Route: 065

REACTIONS (3)
  - Drug abuse [Unknown]
  - Palpitations [Recovered/Resolved]
  - Chest pain [Recovered/Resolved]

NARRATIVE: CASE EVENT DATE: 20220101
